FAERS Safety Report 4402312-4 (Version None)
Quarter: 2004Q3

REPORT INFORMATION
  Report Type: 
  Country: None (occurrence: None)
  Receive Date: 20040720
  Receipt Date: 20040712
  Transmission Date: 20050211
  Serious: Yes (Other)
  Sender: FDA-Public Use
  Company Number: FR-GLAXOSMITHKLINE-B0339499A

PATIENT
  Age: 38 Year
  Sex: Female

DRUGS (1)
  1. VALACYCLOVIR HCL [Suspect]
     Indication: VARICELLA
     Dosage: 500MG FIVE TIMES PER DAY
     Route: 048
     Dates: start: 20040709

REACTIONS (2)
  - ANXIETY [None]
  - HALLUCINATION [None]
